FAERS Safety Report 12095201 (Version 2)
Quarter: 2016Q1

REPORT INFORMATION
  Report Type: Spontaneous
  Country: US (occurrence: US)
  Receive Date: 20160219
  Receipt Date: 20160330
  Transmission Date: 20160526
  Serious: No
  Sender: FDA-Public Use
  Company Number: US-B.I. PHARMACEUTICALS,INC./RIDGEFIELD-2016-BI-05838BP

PATIENT

DRUGS (1)
  1. TRADJENTA [Suspect]
     Active Substance: LINAGLIPTIN
     Indication: PRODUCT USED FOR UNKNOWN INDICATION
     Route: 065

REACTIONS (16)
  - Oesophageal irritation [Unknown]
  - Adjustment disorder [Unknown]
  - Abdominal pain upper [Recovered/Resolved]
  - Epistaxis [Unknown]
  - Throat irritation [Unknown]
  - Flatulence [Recovered/Resolved]
  - Abdominal pain [Unknown]
  - Balance disorder [Unknown]
  - Mood swings [Recovered/Resolved]
  - Eructation [Unknown]
  - Agitation [Recovered/Resolved]
  - Headache [Unknown]
  - Irritability [Unknown]
  - Memory impairment [Unknown]
  - Depression [Recovered/Resolved]
  - Dizziness [Unknown]
